FAERS Safety Report 4546796-X (Version None)
Quarter: 2005Q1

REPORT INFORMATION
  Report Type: 
  Country: None (occurrence: None)
  Receive Date: 20050105
  Receipt Date: 20041228
  Transmission Date: 20050727
  Serious: Yes (Hospitalization, Other)
  Sender: FDA-Public Use
  Company Number: 200411204BVD

PATIENT
  Sex: Male

DRUGS (3)
  1. CIPROFLOXACIN [Suspect]
     Indication: URINARY TRACT INFECTION
     Dosage: 500 MG, TOTAL DAILY, ORAL
     Route: 048
     Dates: start: 20041223
  2. ACETAMINOPHEN [Concomitant]
  3. IBUPROFEN [Concomitant]

REACTIONS (9)
  - HYPONATRAEMIA [None]
  - LEUKOPENIA [None]
  - LUNG INFILTRATION [None]
  - MONARTHRITIS [None]
  - PURPURA [None]
  - THROMBOCYTOPENIA [None]
  - UROSEPSIS [None]
  - VASCULITIS [None]
  - WHITE BLOOD CELL COUNT DECREASED [None]
